FAERS Safety Report 5582998-1 (Version None)
Quarter: 2007Q4

REPORT INFORMATION
  Report Type: 
  Country: None (occurrence: None)
  Receive Date: 20071231
  Receipt Date: 20071221
  Transmission Date: 20080405
  Serious: No
  Sender: FDA-Public Use
  Company Number: 2007-169538-NL

PATIENT
  Age: 30 Year
  Sex: Female

DRUGS (1)
  1. NUVARING [Suspect]
     Indication: CONTRACEPTION
     Dosage: DF VAGINAL
     Route: 067
     Dates: start: 20071111, end: 20071120

REACTIONS (6)
  - CONTACT LENS INTOLERANCE [None]
  - HALLUCINATION, AUDITORY [None]
  - INSOMNIA [None]
  - PANIC ATTACK [None]
  - PARANOIA [None]
  - VAGINAL HAEMORRHAGE [None]
